FAERS Safety Report 16204370 (Version 1)
Quarter: 2019Q2

REPORT INFORMATION
  Report Type: Spontaneous
  Country: FR (occurrence: FR)
  Receive Date: 20190416
  Receipt Date: 20190416
  Transmission Date: 20190711
  Serious: Yes (Death, Life-Threatening, Hospitalization, Other)
  Sender: FDA-Public Use
  Company Number: PHHY2017FR204320

PATIENT
  Age: 80 Year
  Sex: Female
  Weight: 50 kg

DRUGS (25)
  1. PARACETAMOL [Suspect]
     Active Substance: ACETAMINOPHEN
     Dosage: 1 DF, QD
     Route: 040
     Dates: start: 20170911
  2. CORDARONE [Suspect]
     Active Substance: AMIODARONE HYDROCHLORIDE
     Dosage: 200 MG, BID
     Route: 048
     Dates: start: 20170911
  3. CALCIDOSE [CALCIUM CARBONATE;COLECALCIFEROL] [Suspect]
     Active Substance: CALCIUM CARBONATE\CHOLECALCIFEROL
     Indication: OSTEOPOROSIS PROPHYLAXIS
     Dosage: 1 DF, QD
     Route: 048
  4. ELIQUIS [Suspect]
     Active Substance: APIXABAN
     Dosage: 1 DF, QD (1 TABLET INTERVAL 1 DAY)
     Route: 040
     Dates: start: 20170911
  5. FUROSEMIDE ARROW [Suspect]
     Active Substance: FUROSEMIDE
     Dosage: 20 MG, QD
     Route: 042
     Dates: start: 20170911
  6. DIGOXINE NATIVELLE [Suspect]
     Active Substance: DIGOXIN
     Indication: ARRHYTHMIA
     Dosage: 1 DF, QD
     Route: 040
  7. CALCIDOSE [CALCIUM CARBONATE;COLECALCIFEROL] [Suspect]
     Active Substance: CALCIUM CARBONATE\CHOLECALCIFEROL
     Dosage: 1 DF, QD
     Route: 040
     Dates: start: 20170911
  8. PARACETAMOL [Suspect]
     Active Substance: ACETAMINOPHEN
     Indication: ANALGESIC THERAPY
     Dosage: 500 MG, QD
     Route: 048
  9. PARACETAMOL [Suspect]
     Active Substance: ACETAMINOPHEN
     Indication: PAIN
     Dosage: 500 MG, BID (2 DF, QD )
     Route: 040
     Dates: start: 20170911
  10. DIGOXINE NATIVELLE [Suspect]
     Active Substance: DIGOXIN
     Dosage: 1 DF, QD
     Route: 040
     Dates: start: 20170911
  11. PREDNISONE ARROW [Suspect]
     Active Substance: PREDNISONE
     Indication: DERMATOMYOSITIS
     Dosage: 1 DF, QD
     Route: 048
  12. LASIX [Suspect]
     Active Substance: FUROSEMIDE
     Dosage: 20 MG, QD
     Route: 041
     Dates: start: 20170911
  13. CALCIUM CARBONATE+CHOLECALCEFEROL [Suspect]
     Active Substance: CALCIUM CARBONATE\CHOLECALCIFEROL
     Indication: OSTEOPOROSIS PROPHYLAXIS
     Dosage: 1 DF, QD
     Route: 040
     Dates: start: 20170911
  14. CORDARONE [Suspect]
     Active Substance: AMIODARONE HYDROCHLORIDE
     Indication: ARRHYTHMIA
     Dosage: 1 DF, QD
     Route: 048
  15. ELIQUIS [Suspect]
     Active Substance: APIXABAN
     Indication: THROMBOSIS PROPHYLAXIS
     Dosage: 1 DF, QD
     Route: 048
     Dates: start: 20170911
  16. LEVOTHYROX [Suspect]
     Active Substance: LEVOTHYROXINE
     Indication: HYPOTHYROIDISM
     Dosage: 1 DF, QD
     Route: 048
  17. LASIX [Suspect]
     Active Substance: FUROSEMIDE
     Indication: CARDIAC FAILURE
     Dosage: 20 MG, QD
     Route: 048
  18. METHOTREXATE. [Concomitant]
     Active Substance: METHOTREXATE
     Indication: NEOPLASM
     Dosage: 0.3 MG/KG, QW (IN COMBINATION WITH THREE CYCLES OF IMMUNOGLOBULINS)
     Route: 065
     Dates: start: 20170801
  19. METHOTREXATE. [Concomitant]
     Active Substance: METHOTREXATE
     Dosage: 0.3 MG/KG, QW
     Route: 065
     Dates: start: 20170911
  20. ARIPIPRAZOLE. [Concomitant]
     Active Substance: ARIPIPRAZOLE
     Indication: PRODUCT USED FOR UNKNOWN INDICATION
     Dosage: UNK
     Route: 065
  21. CORDARONE [Suspect]
     Active Substance: AMIODARONE HYDROCHLORIDE
     Dosage: 1 DF, QD (INTERVAL 1 DAY)
     Route: 040
     Dates: start: 20170911
  22. LEVOTHYROX [Suspect]
     Active Substance: LEVOTHYROXINE
     Dosage: 175 UG, QD (1 GRINDED TABLET)
     Route: 040
     Dates: start: 20170911
  23. PREDNISONE ARROW [Suspect]
     Active Substance: PREDNISONE
     Dosage: 45 MG, QD
     Route: 040
     Dates: start: 20170911
  24. FUROSEMIDE ARROW [Suspect]
     Active Substance: FUROSEMIDE
     Indication: CARDIAC FAILURE
     Dosage: 20 MG, QD
     Route: 048
  25. ELIQUIS [Suspect]
     Active Substance: APIXABAN
     Dosage: 2.5 MG, UNK
     Route: 040
     Dates: start: 20170911

REACTIONS (4)
  - Medication error [Fatal]
  - Off label use [Unknown]
  - Cardio-respiratory arrest [Fatal]
  - Incorrect route of product administration [Fatal]

NARRATIVE: CASE EVENT DATE: 20170911
